FAERS Safety Report 7779699-8 (Version None)
Quarter: 2011Q3

REPORT INFORMATION
  Report Type: 
  Country: None (occurrence: None)
  Receive Date: 20110927
  Receipt Date: 20110922
  Transmission Date: 20111222
  Serious: Yes (Other)
  Sender: FDA-Public Use
  Company Number: DE-PFIZER INC-2011226778

PATIENT
  Age: 54 Year
  Sex: Female

DRUGS (1)
  1. RELPAX [Suspect]
     Dosage: OCCASSIONALLY

REACTIONS (2)
  - INTRACRANIAL ANEURYSM [None]
  - INTRACRANIAL VENOUS SINUS THROMBOSIS [None]
